FAERS Safety Report 6767099-9 (Version None)
Quarter: 2010Q2

REPORT INFORMATION
  Report Type: 
  Country: None (occurrence: None)
  Receive Date: 20100614
  Receipt Date: 20100602
  Transmission Date: 20101027
  Serious: Yes (Hospitalization)
  Sender: FDA-Public Use
  Company Number: US-ELI_LILLY_AND_COMPANY-US201006001093

PATIENT
  Sex: Female
  Weight: 71.3 kg

DRUGS (11)
  1. GEMCITABINE HYDROCHLORIDE [Suspect]
     Indication: T-CELL LYMPHOMA
     Dosage: 600 MG/M2, OTHER
     Route: 042
     Dates: start: 20090928
  2. OTHER PHARMA COMPANY INV DRUG [Suspect]
     Indication: T-CELL LYMPHOMA
     Dosage: 15 MG/M2, OTHER
     Route: 042
     Dates: start: 20090928
  3. CANDESARTAN [Concomitant]
  4. CALCIUM W/VITAMIN D NOS [Concomitant]
  5. PROPOXYPHENE [Concomitant]
  6. CALCIPOTRIENE [Concomitant]
  7. PSYLLIUM [Concomitant]
  8. FOLIC ACID [Concomitant]
  9. DEXLANSOPRAZOLE [Concomitant]
  10. VITAMIN B-12 [Concomitant]
  11. LEVALBUTEROL HYDROCHLORIDE [Concomitant]

REACTIONS (2)
  - CHEST PAIN [None]
  - DYSPNOEA [None]
